FAERS Safety Report 9833100 (Version 2)
Quarter: 2014Q3

REPORT INFORMATION
  Report Type: Spontaneous
  Country: US (occurrence: US)
  Receive Date: 20140121
  Receipt Date: 20140815
  Transmission Date: 20150326
  Serious: Yes (Hospitalization, Other)
  Sender: FDA-Public Use
  Company Number: US-009507513-1401USA005610

PATIENT
  Sex: Female

DRUGS (1)
  1. NUVARING [Suspect]
     Active Substance: ETHINYL ESTRADIOL\ETONOGESTREL
     Dosage: UNK
     Route: 067
     Dates: start: 20110411, end: 20120530

REACTIONS (11)
  - Pulmonary arterial hypertension [Unknown]
  - Depression [Unknown]
  - Costochondritis [Unknown]
  - Mitral valve prolapse [Unknown]
  - Anxiety [Unknown]
  - Deep vein thrombosis [Unknown]
  - Pulmonary embolism [Unknown]
  - Insomnia [Unknown]
  - Pain in extremity [Unknown]
  - Haemorrhoids thrombosed [Unknown]
  - Fatigue [Unknown]

NARRATIVE: CASE EVENT DATE: 20120529
